FAERS Safety Report 16716220 (Version 1)
Quarter: 2019Q3

REPORT INFORMATION
  Report Type: Spontaneous
  Country: US (occurrence: US)
  Receive Date: 20190819
  Receipt Date: 20190819
  Transmission Date: 20191005
  Serious: Yes (Hospitalization, Other)
  Sender: FDA-Public Use
  Company Number: US-MYLANLABS-2019M1076248

PATIENT
  Sex: Female

DRUGS (1)
  1. EXTENDED PHENYTOIN SODIUM [Suspect]
     Active Substance: PHENYTOIN SODIUM
     Indication: SEIZURE
     Dosage: 3 DOSAGE FORM, HS
     Route: 048

REACTIONS (3)
  - Seizure [Not Recovered/Not Resolved]
  - Drug screen negative [Not Recovered/Not Resolved]
  - Drug ineffective [Unknown]
